FAERS Safety Report 5414990-1 (Version None)
Quarter: 2007Q3

REPORT INFORMATION
  Report Type: 
  Country: None (occurrence: None)
  Receive Date: 20070813
  Receipt Date: 20070727
  Transmission Date: 20080115
  Serious: Yes (Other)
  Sender: FDA-Public Use
  Company Number: 8025793

PATIENT
  Age: 12 Year
  Sex: Male
  Weight: 66.2 kg

DRUGS (1)
  1. EQUASYM [Suspect]
     Dosage: 20 MG /D
     Dates: start: 20070509

REACTIONS (1)
  - ARRHYTHMIA [None]
